FAERS Safety Report 8978347 (Version 6)
Quarter: 2013Q4

REPORT INFORMATION
  Report Type: Report from Study
  Country: IL (occurrence: IL)
  Receive Date: 20121221
  Receipt Date: 20131115
  Transmission Date: 20140711
  Serious: Yes (Hospitalization)
  Sender: FDA-Public Use
  Company Number: IL-009507513-1212ISR000236

PATIENT
  Age: 65 Year
  Sex: Male

DRUGS (18)
  1. BLINDED VARICELLA-ZOSTER VIRUS VACCINE INACTIVATED (OKA/MERCK) [Suspect]
     Indication: PROPHYLAXIS
     Route: 058
     Dates: start: 20111117, end: 20111117
  2. BLINDED VARICELLA-ZOSTER VIRUS VACCINE INACTIVATED (OKA/MERCK) [Suspect]
     Route: 058
     Dates: start: 20110823, end: 20110823
  3. BLINDED VARICELLA-ZOSTER VIRUS VACCINE INACTIVATED (OKA/MERCK) [Suspect]
     Route: 058
     Dates: start: 20110920, end: 20110920
  4. BLINDED VARICELLA-ZOSTER VIRUS VACCINE INACTIVATED (OKA/MERCK) [Suspect]
     Route: 058
     Dates: start: 20111016, end: 20111016
  5. DEXAMETHASONE [Suspect]
     Indication: PLASMA CELL MYELOMA
     Dosage: 40 MG, QW
     Route: 042
     Dates: start: 20120924
  6. LENALIDOMIDE [Suspect]
     Indication: PLASMA CELL MYELOMA
     Dosage: 25 MG,DAILY
     Route: 048
     Dates: start: 20120924, end: 20130228
  7. ATORVASTATIN [Concomitant]
     Indication: HYPERCHOLESTEROLAEMIA
     Dosage: UNK
     Dates: start: 201104
  8. PLAVIX [Concomitant]
     Indication: MYOCARDIAL ISCHAEMIA
     Dosage: 75 MG, QD
     Route: 048
     Dates: start: 20110408
  9. MICROPIRIN [Concomitant]
     Indication: MYOCARDIAL ISCHAEMIA
     Dosage: UNK
     Dates: start: 201104
  10. ENALADEX [Concomitant]
     Indication: HYPERTENSION
     Dosage: UNK
     Dates: start: 201104
  11. DEXAMETHASONE [Concomitant]
     Indication: PLASMA CELL MYELOMA
     Dosage: 20 MG, QW
     Route: 042
     Dates: start: 20110225
  12. ASPIRIN [Concomitant]
     Indication: MYOCARDIAL ISCHAEMIA
     Dosage: 100 MG, QD
     Route: 048
     Dates: start: 20110417, end: 20121129
  13. DURAGESIC [Concomitant]
     Indication: PAIN
     Dosage: 25 MCG/ HR
     Route: 062
     Dates: start: 20110508
  14. ATORVASTATIN [Concomitant]
     Indication: MYOCARDIAL ISCHAEMIA
     Dosage: 40 MG, QD
     Route: 048
     Dates: start: 20120408
  15. ATORVASTATIN [Concomitant]
     Dosage: UNK
  16. AREDIA [Concomitant]
     Indication: HYPERCALCAEMIA
     Dosage: 60 MG, QM
     Route: 042
     Dates: start: 20121023
  17. FENTORA [Concomitant]
     Indication: PAIN
     Dosage: 25 MCG/HR,
     Route: 062
     Dates: start: 201105
  18. LENALIDOMIDE [Concomitant]
     Indication: PLASMA CELL MYELOMA
     Dosage: 15 MG, QD
     Route: 048
     Dates: start: 20120311

REACTIONS (1)
  - Deep vein thrombosis [Recovered/Resolved]
